FAERS Safety Report 5241263-2 (Version None)
Quarter: 2007Q1

REPORT INFORMATION
  Report Type: 
  Country: None (occurrence: None)
  Receive Date: 20070215
  Receipt Date: 20070215
  Transmission Date: 20070707
  Serious: Yes (Hospitalization)
  Sender: FDA-Public Use
  Company Number: None

PATIENT
  Age: 75 Year
  Sex: Male

DRUGS (8)
  1. CLONIDINE [Suspect]
     Indication: HYPERTENSION
     Dosage: 0.1MG TID
     Dates: start: 20061016
  2. FUROSEMIDE [Suspect]
     Indication: HYPERTENSION
     Dosage: 20MG QD
     Dates: start: 20061016
  3. ZOCOR [Concomitant]
  4. FOLIC ACID [Concomitant]
  5. ADALAT [Concomitant]
  6. OMEPRAZOLE [Concomitant]
  7. MIRTAZAPINE [Concomitant]
  8. TRAZODONE HCL [Concomitant]

REACTIONS (1)
  - PRESYNCOPE [None]
